FAERS Safety Report 24137970 (Version 1)
Quarter: 2024Q3

REPORT INFORMATION
  Report Type: Spontaneous
  Country: US (occurrence: None)
  Receive Date: 20240725
  Receipt Date: 20240725
  Transmission Date: 20241017
  Serious: Yes (Other)
  Sender: Public
  Company Number: None

PATIENT
  Age: 71 Year
  Sex: Female
  Weight: 63.05 kg

DRUGS (1)
  1. DEPAKOTE [Suspect]
     Active Substance: DIVALPROEX SODIUM
     Indication: Seizure
     Dosage: FREQUENCY : TWICE A DAY;?
     Route: 048
     Dates: start: 202402, end: 202404

REACTIONS (12)
  - Dizziness [None]
  - Alopecia [None]
  - Tremor [None]
  - Balance disorder [None]
  - Anxiety [None]
  - Brain fog [None]
  - Visual impairment [None]
  - Fear [None]
  - Suicidal ideation [None]
  - Rash [None]
  - Depression [None]
  - Madarosis [None]

NARRATIVE: CASE EVENT DATE: 20240201
